FAERS Safety Report 21522331 (Version 1)
Quarter: 2022Q4

REPORT INFORMATION
  Report Type: Spontaneous
  Country: US (occurrence: US)
  Receive Date: 20221028
  Receipt Date: 20221028
  Transmission Date: 20230112
  Serious: Yes (Other)
  Sender: FDA-Public Use
  Company Number: US-STRIDES ARCOLAB LIMITED-2022SP014096

PATIENT
  Age: 79 Year
  Sex: Male

DRUGS (26)
  1. CYCLOBENZAPRINE [Suspect]
     Active Substance: CYCLOBENZAPRINE
     Indication: Muscle relaxant therapy
     Dosage: UNK, TID; (10 THREE TIMES DAILY UNIT NOT STATED)
     Route: 065
  2. OXYCODONE [Suspect]
     Active Substance: OXYCODONE
     Indication: Procedural pain
     Dosage: UNK; 10 UNIT NOT STATED
     Route: 065
  3. OXYCODONE [Suspect]
     Active Substance: OXYCODONE
     Dosage: UNK; POSTOPERATIVELY
     Route: 065
  4. OXYCODONE [Suspect]
     Active Substance: OXYCODONE
     Dosage: UNK; 20 UNIT NOT STATED
     Route: 065
  5. BACLOFEN [Suspect]
     Active Substance: BACLOFEN
     Indication: Muscle relaxant therapy
     Dosage: UNK, TID; (10 THREE TIMES DAILY UNIT NOT STATED)
     Route: 065
  6. GABAPENTIN [Suspect]
     Active Substance: GABAPENTIN
     Indication: Procedural pain
     Dosage: UNK, TID (300 UNITS NOT SPECIFIED)
     Route: 065
  7. GABAPENTIN [Suspect]
     Active Substance: GABAPENTIN
     Dosage: UNK; POSTOPERATIVELY GIVEN
     Route: 065
  8. ACETAMINOPHEN [Concomitant]
     Active Substance: ACETAMINOPHEN
     Indication: Procedural pain
     Dosage: UNK; INTRAOPERATIVELY
     Route: 065
  9. ACETAMINOPHEN [Concomitant]
     Active Substance: ACETAMINOPHEN
     Dosage: UNK; AFTER FIRST SURGERY
     Route: 065
  10. ACETAMINOPHEN [Concomitant]
     Active Substance: ACETAMINOPHEN
     Dosage: UNK; DURING PRE-OPERATIVE ASSESSMENT
     Route: 065
  11. ACETAMINOPHEN [Concomitant]
     Active Substance: ACETAMINOPHEN
     Dosage: UNK; AFTER THIRD SURGERY
     Route: 065
  12. HYDROMORPHONE [Concomitant]
     Active Substance: HYDROMORPHONE
     Indication: Procedural pain
     Dosage: UNK; 2 UNIT NOT STATED
     Route: 048
  13. HYDROMORPHONE [Concomitant]
     Active Substance: HYDROMORPHONE
     Dosage: UNK; (1 UNIT NOT STATED)
     Route: 042
  14. MEPERIDINE [Concomitant]
     Active Substance: MEPERIDINE
     Indication: Procedural pain
     Dosage: UNK; (25 UNIT NOT STATED)
     Route: 042
  15. SEVOFLURANE [Concomitant]
     Active Substance: SEVOFLURANE
     Indication: Induction and maintenance of anaesthesia
     Dosage: UNK
     Route: 065
  16. SEVOFLURANE [Concomitant]
     Active Substance: SEVOFLURANE
     Indication: Pain management
  17. LIDOCAINE [Concomitant]
     Active Substance: LIDOCAINE
     Indication: Pain management
     Dosage: UNK
     Route: 065
  18. PHENYLEPHRINE [Concomitant]
     Active Substance: PHENYLEPHRINE HYDROCHLORIDE
     Indication: Pain management
     Dosage: UNK; INTRAOPERATIVE MEDICATIONS
     Route: 065
  19. PHENYLEPHRINE [Concomitant]
     Active Substance: PHENYLEPHRINE HYDROCHLORIDE
     Dosage: UNK; FOR PAIN MANAGEMENT
     Route: 065
  20. PROPOFOL [Concomitant]
     Active Substance: PROPOFOL
     Indication: Induction and maintenance of anaesthesia
     Dosage: UNK
     Route: 065
  21. FENTANYL [Concomitant]
     Active Substance: FENTANYL
     Indication: Pain management
     Dosage: UNK; INTRAOPERATIVE MEDICATIONS
     Route: 065
  22. FENTANYL [Concomitant]
     Active Substance: FENTANYL
     Dosage: UNK; INTRAOPERATIVE PAIN MANAGEMENT
     Route: 065
  23. KETOROLAC [Concomitant]
     Active Substance: KETOROLAC TROMETHAMINE
     Indication: Pain management
     Dosage: UNK
     Route: 065
  24. CELECOXIB [Concomitant]
     Active Substance: CELECOXIB
     Indication: Procedural pain
     Dosage: UNK
     Route: 065
  25. MORPHINE [Concomitant]
     Active Substance: MORPHINE
     Indication: Procedural pain
     Dosage: 11.6 MILLIGRAM/DAILY
     Route: 065
  26. TRAMADOL [Concomitant]
     Active Substance: TRAMADOL
     Indication: Procedural pain
     Dosage: UNK, 425 UNIT NOT STATED
     Route: 065

REACTIONS (2)
  - Postoperative delirium [Recovered/Resolved]
  - Off label use [Unknown]
